FAERS Safety Report 5397789-4 (Version None)
Quarter: 2007Q3

REPORT INFORMATION
  Report Type: 
  Country: None (occurrence: None)
  Receive Date: 20070726
  Receipt Date: 20070723
  Transmission Date: 20080115
  Serious: Yes (Other)
  Sender: FDA-Public Use
  Company Number: D0054070A

PATIENT
  Sex: Male

DRUGS (2)
  1. VIANI [Suspect]
     Dosage: 3PUFF PER DAY
     Route: 055
  2. SALBUTAMOL [Suspect]
     Route: 055

REACTIONS (4)
  - CIRCULATORY COLLAPSE [None]
  - DYSPNOEA [None]
  - MALAISE [None]
  - TACHYCARDIA [None]
